FAERS Safety Report 9369403 (Version 2)
Quarter: 2013Q3

REPORT INFORMATION
  Report Type: Report from Study
  Country: CA (occurrence: CA)
  Receive Date: 20130626
  Receipt Date: 20130924
  Transmission Date: 20140515
  Serious: Yes (Hospitalization)
  Sender: FDA-Public Use
  Company Number: CA-JNJFOC-20130611852

PATIENT
  Age: 86 Year
  Sex: Female
  Weight: 49 kg

DRUGS (22)
  1. REMICADE [Suspect]
     Indication: RHEUMATOID ARTHRITIS
     Dosage: DOSE IN SERIES 17
     Route: 042
     Dates: start: 20110208
  2. REMICADE [Suspect]
     Indication: RHEUMATOID ARTHRITIS
     Route: 042
     Dates: start: 20130910
  3. REMICADE [Suspect]
     Indication: RHEUMATOID ARTHRITIS
     Route: 042
     Dates: start: 20110214, end: 20130611
  4. ATORVASTATIN CALCIUM [Concomitant]
     Indication: BLOOD CHOLESTEROL INCREASED
     Route: 048
     Dates: start: 20120909
  5. FERROUS GLUCONATE [Concomitant]
     Route: 065
     Dates: start: 20120506
  6. METHOTREXATE SODIUM [Concomitant]
     Indication: RHEUMATOID ARTHRITIS
     Route: 048
     Dates: start: 20120819
  7. PREDNISONE [Concomitant]
     Route: 065
     Dates: start: 20120516
  8. RISEDRONATE SODIUM [Concomitant]
     Route: 065
     Dates: start: 20120707
  9. PERINDOPRIL ERBUMINE [Concomitant]
     Dosage: 4-1.25 MG
     Route: 065
     Dates: start: 20120708
  10. EZETROL [Concomitant]
     Indication: HYPERTENSION
     Route: 048
     Dates: start: 20120708
  11. LATANOPROST [Concomitant]
     Dosage: 1 DROP IN EACH EYE
     Route: 047
     Dates: start: 20120722
  12. RABEPRAZOLE SODIUM [Concomitant]
     Indication: PROPHYLAXIS AGAINST GASTROINTESTINAL ULCER
     Route: 065
     Dates: start: 20120708
  13. BETAHISTINE HYDROCHLORIDE [Concomitant]
     Route: 065
     Dates: start: 20120828
  14. FOLIC ACID [Concomitant]
     Indication: RHEUMATOID ARTHRITIS
     Route: 048
  15. VITAMIN B12 [Concomitant]
     Route: 065
  16. ASA [Concomitant]
     Route: 065
  17. VITAMIN C [Concomitant]
     Route: 065
  18. VITAMIN D [Concomitant]
     Route: 065
  19. TYLENOL 2 [Concomitant]
     Dosage: 1 TABLET
     Route: 048
  20. CALCIUM [Concomitant]
     Route: 065
  21. AN UNKNOWN MEDICATION [Concomitant]
     Indication: PAIN
     Dosage: 4-6 TABLETS DAILY, FOR EXTENDED PAIN
     Route: 065
  22. AN UNKNOWN MEDICATION [Concomitant]
     Indication: ARTHRITIS
     Dosage: 4-6 TABLETS DAILY, FOR EXTENDED PAIN
     Route: 065

REACTIONS (1)
  - Breast cancer [Recovered/Resolved]
